FAERS Safety Report 13183229 (Version 5)
Quarter: 2017Q2

REPORT INFORMATION
  Report Type: Spontaneous
  Country: BR (occurrence: BR)
  Receive Date: 20170203
  Receipt Date: 20170424
  Transmission Date: 20170830
  Serious: Yes (Death, Life-Threatening, Hospitalization, Other)
  Sender: FDA-Public Use
  Company Number: BR-AMGEN-BRASP2017015029

PATIENT
  Age: 93 Year
  Sex: Female
  Weight: 55 kg

DRUGS (2)
  1. NPLATE [Suspect]
     Active Substance: ROMIPLOSTIM
     Indication: MYELODYSPLASTIC SYNDROME
  2. NPLATE [Suspect]
     Active Substance: ROMIPLOSTIM
     Indication: THROMBOCYTOPENIA
     Dosage: 750 MUG, QWK
     Route: 058
     Dates: start: 20160829, end: 20170109

REACTIONS (10)
  - Ascites [Unknown]
  - Portal hypertension [Unknown]
  - Off label use [Unknown]
  - Splenomegaly [Unknown]
  - Type 2 diabetes mellitus [Unknown]
  - Staphylococcal sepsis [Unknown]
  - Proteinuria [Unknown]
  - Hepatic cirrhosis [Fatal]
  - Urinary tract infection [Unknown]
  - Cholelithiasis [Unknown]

NARRATIVE: CASE EVENT DATE: 201610
